FAERS Safety Report 19003807 (Version 1)
Quarter: 2021Q1

REPORT INFORMATION
  Report Type: Report from Study
  Country: US (occurrence: US)
  Receive Date: 20210312
  Receipt Date: 20210312
  Transmission Date: 20210420
  Serious: Yes (Hospitalization, Other)
  Sender: FDA-Public Use
  Company Number: US-BAUSCH-BL-2021-008409

PATIENT
  Age: 67 Year
  Sex: Male

DRUGS (13)
  1. XIFAXAN [Suspect]
     Active Substance: RIFAXIMIN
     Indication: HEPATIC ENCEPHALOPATHY
     Route: 048
     Dates: start: 20200514
  2. PROTONIX [Concomitant]
     Active Substance: PANTOPRAZOLE SODIUM
     Indication: PRODUCT USED FOR UNKNOWN INDICATION
     Dosage: TAKE 1 TABLET BY TWICE DAILY 30?60 MINS BEFORE BREAKFAST AND DINNER FOR 1 MONTH AND THEN ONCE A DAY
     Route: 048
     Dates: start: 20200518
  3. COREG [Concomitant]
     Active Substance: CARVEDILOL
     Indication: VARICES OESOPHAGEAL
     Dosage: TAKE 2 TABLETS (6.25 MG) FOR A DAY
     Route: 048
     Dates: start: 20200518
  4. CONSTULOSE [Concomitant]
     Active Substance: LACTULOSE
     Indication: DIARRHOEA
     Dosage: 10 GRAM/15 ML, 30 CC TID
     Dates: start: 20200609
  5. ALDACTONE [Concomitant]
     Active Substance: SPIRONOLACTONE
     Indication: PRODUCT USED FOR UNKNOWN INDICATION
     Route: 048
     Dates: start: 20200518
  6. PROTONIX [Concomitant]
     Active Substance: PANTOPRAZOLE SODIUM
     Route: 048
  7. GLUCOPHAGE [Concomitant]
     Active Substance: METFORMIN HYDROCHLORIDE
     Indication: PRODUCT USED FOR UNKNOWN INDICATION
     Route: 048
     Dates: start: 20200421
  8. COREG [Concomitant]
     Active Substance: CARVEDILOL
     Route: 048
  9. PYLERA [Concomitant]
     Active Substance: BISMUTH SUBCITRATE POTASSIUM\METRONIDAZOLE\TETRACYCLINE HYDROCHLORIDE
     Indication: HELICOBACTER INFECTION
     Dosage: 140?125?125 MG, TAKE 3 CAPSULES Q IN 6 HOURS FOR 14 DAYS
     Dates: start: 20200519
  10. THIAMINE. [Concomitant]
     Active Substance: THIAMINE
     Indication: PRODUCT USED FOR UNKNOWN INDICATION
     Route: 048
     Dates: start: 20200514
  11. CENTRUM SILVER [Concomitant]
     Active Substance: MINERALS\VITAMINS
     Indication: PRODUCT USED FOR UNKNOWN INDICATION
     Route: 048
     Dates: start: 20200421
  12. CARAFATE [Concomitant]
     Active Substance: SUCRALFATE
     Indication: PRODUCT USED FOR UNKNOWN INDICATION
     Dosage: TAKE 1 GRAM BY MOUTH BEFORE MEALS AND AT BEDTIME FOR 14 DAYS
     Route: 048
     Dates: start: 20200518
  13. PAMELOR [Concomitant]
     Active Substance: NORTRIPTYLINE HYDROCHLORIDE
     Indication: PRODUCT USED FOR UNKNOWN INDICATION
     Dosage: 3 (50 MG) CAPSULE BY MOUTH ONCE A DAY
     Route: 048
     Dates: start: 20200421

REACTIONS (4)
  - Disease progression [Recovering/Resolving]
  - Hepatic encephalopathy [Recovering/Resolving]
  - Hyperkalaemia [Unknown]
  - Peripheral venous disease [Unknown]

NARRATIVE: CASE EVENT DATE: 2020
